FAERS Safety Report 10172149 (Version 3)
Quarter: 2014Q2

REPORT INFORMATION
  Report Type: Spontaneous
  Country: DK (occurrence: DK)
  Receive Date: 20140515
  Receipt Date: 20140528
  Transmission Date: 20141212
  Serious: Yes (Life-Threatening, Other)
  Sender: FDA-Public Use
  Company Number: PHHY2014DK056088

PATIENT
  Age: 78 Year
  Sex: Female

DRUGS (1)
  1. ENALAPRIL [Suspect]

REACTIONS (2)
  - Angioedema [Recovered/Resolved]
  - Aphonia [Recovered/Resolved]
